FAERS Safety Report 6608913-7 (Version None)
Quarter: 2010Q1

REPORT INFORMATION
  Report Type: 
  Country: None (occurrence: None)
  Receive Date: 20100301
  Receipt Date: 20100219
  Transmission Date: 20100710
  Serious: Yes (Hospitalization)
  Sender: FDA-Public Use
  Company Number: IT-PFIZER INC-2010022492

PATIENT
  Age: 54 Year
  Sex: Female

DRUGS (7)
  1. CARDURA [Suspect]
     Indication: HYPERTENSION
     Dosage: 4 MG X DAY
     Route: 048
     Dates: start: 20080101, end: 20100206
  2. DINTOINA [Suspect]
     Indication: EPILEPSY
     Dosage: 300 MG X DAY
     Route: 048
     Dates: start: 20100112, end: 20100127
  3. VANCOMYCIN [Suspect]
     Indication: SEPSIS
     Dosage: 2 G X DAY
     Route: 042
     Dates: start: 20100113, end: 20100202
  4. TAZOCIN [Suspect]
     Indication: SEPSIS
     Dosage: 13.5 G X DAY
     Route: 042
     Dates: start: 20100114, end: 20100202
  5. METRONIDAZOLE [Suspect]
     Indication: SEPSIS
     Dosage: 1.5 G X DAY
     Route: 048
     Dates: start: 20100125, end: 20100202
  6. CLEXANE [Concomitant]
     Indication: ANTICOAGULANT THERAPY
     Dosage: 8000 IU, IN THOUSAND
     Route: 058
     Dates: start: 20080101, end: 20100218
  7. FOLINA [Concomitant]
     Indication: ANAEMIA FOLATE DEFICIENCY
     Dosage: 5 MG
     Route: 048
     Dates: start: 20100114, end: 20100218

REACTIONS (1)
  - DERMATITIS EXFOLIATIVE [None]
